FAERS Safety Report 9263468 (Version 1)
Quarter: 2013Q2

REPORT INFORMATION
  Report Type: Report from Study
  Country: US (occurrence: US)
  Receive Date: 20130430
  Receipt Date: 20130430
  Transmission Date: 20140414
  Serious: No
  Sender: FDA-Public Use
  Company Number: US-ABBOTT-13P-163-1034135-00

PATIENT
  Age: 73 Year
  Sex: Female
  Weight: 75.36 kg

DRUGS (28)
  1. CREON [Suspect]
     Indication: PANCREATIC DISORDER
     Dates: start: 201211
  2. CREON [Suspect]
     Indication: BLOOD GLUCOSE
  3. JANUVIA [Concomitant]
     Indication: DIABETES MELLITUS
  4. CLONAPINE [Concomitant]
     Indication: NERVOUSNESS
  5. CLONAPINE [Concomitant]
     Indication: DEPRESSION
  6. ISOBIDE [Concomitant]
     Indication: BLOOD PRESSURE
  7. AMLODIPINE [Concomitant]
     Indication: PRODUCT USED FOR UNKNOWN INDICATION
  8. METFORMIN [Concomitant]
     Indication: DIABETES MELLITUS
  9. LEVOTHYROXINE [Concomitant]
     Indication: THYROID DISORDER
  10. HYDROCODONE [Concomitant]
     Indication: BACK PAIN
  11. SUCRALFATE [Concomitant]
     Indication: GASTRIC DISORDER
  12. METOPROLOL [Concomitant]
     Indication: PRODUCT USED FOR UNKNOWN INDICATION
  13. CYMBALTA [Concomitant]
     Indication: PRODUCT USED FOR UNKNOWN INDICATION
  14. SIMVASTATIN [Concomitant]
     Indication: PRODUCT USED FOR UNKNOWN INDICATION
  15. LISINOPRIL [Concomitant]
     Indication: PRODUCT USED FOR UNKNOWN INDICATION
  16. OMEPRAZOLE [Concomitant]
     Indication: PRODUCT USED FOR UNKNOWN INDICATION
  17. WARFARIN [Concomitant]
     Indication: ANTICOAGULANT THERAPY
  18. NITROSTAT [Concomitant]
     Indication: ANGINA PECTORIS
  19. NASONEX [Concomitant]
     Indication: SINUS DISORDER
  20. VERMOTIC R [Concomitant]
     Indication: CERUMEN IMPACTION
  21. EYE CAPS VITAMIN [Concomitant]
     Indication: PRODUCT USED FOR UNKNOWN INDICATION
  22. VITAMIN C [Concomitant]
     Indication: PRODUCT USED FOR UNKNOWN INDICATION
  23. MULTIVITAMIN [Concomitant]
     Indication: PRODUCT USED FOR UNKNOWN INDICATION
  24. CALCIUM [Concomitant]
     Indication: PRODUCT USED FOR UNKNOWN INDICATION
  25. MAGNESIUM [Concomitant]
     Indication: PRODUCT USED FOR UNKNOWN INDICATION
  26. SYSTANE BALANCE [Concomitant]
     Indication: DRY EYE
  27. SYSTANE ULTRA [Concomitant]
     Indication: MACULAR DEGENERATION
  28. COUGH DROP [Concomitant]
     Indication: COUGH

REACTIONS (4)
  - Fall [Recovered/Resolved]
  - Impaired gastric emptying [Unknown]
  - Pancreatic enlargement [Unknown]
  - Blood glucose abnormal [Unknown]
